FAERS Safety Report 12498875 (Version 2)
Quarter: 2016Q3

REPORT INFORMATION
  Report Type: Spontaneous
  Country: US (occurrence: US)
  Receive Date: 20160627
  Receipt Date: 20160712
  Transmission Date: 20161109
  Serious: Yes (Other)
  Sender: FDA-Public Use
  Company Number: US-AUROBINDO PHARMA LTD, UK-AUR-APL-2014-06905

PATIENT
  Age: 69 Year
  Sex: Female

DRUGS (1)
  1. ACICLOVIR INJECTION [Suspect]
     Active Substance: ACYCLOVIR
     Indication: PRODUCT USED FOR UNKNOWN INDICATION
     Dosage: 750 MG, TWO TIMES A DAY
     Route: 042

REACTIONS (4)
  - Unresponsive to stimuli [Recovered/Resolved]
  - Myoclonus [Recovered/Resolved]
  - Neurotoxicity [Recovered/Resolved]
  - Confusional state [Recovered/Resolved]
